FAERS Safety Report 10367092 (Version 1)
Quarter: 2014Q3

REPORT INFORMATION
  Report Type: Report from Study
  Country: US (occurrence: US)
  Receive Date: 20140807
  Receipt Date: 20140807
  Transmission Date: 20150326
  Serious: Yes (Other)
  Sender: FDA-Public Use
  Company Number: US-ROCHE-1387761

PATIENT
  Sex: Female

DRUGS (6)
  1. COPEGUS [Suspect]
     Active Substance: RIBAVIRIN
     Route: 048
  2. COPEGUS [Suspect]
     Active Substance: RIBAVIRIN
     Indication: HEPATITIS C
     Route: 048
     Dates: start: 20120604
  3. PEGASYS [Suspect]
     Active Substance: PEGINTERFERON ALFA-2A
     Indication: HEPATITIS C
     Route: 058
     Dates: start: 20120604
  4. ZYRTEC [Concomitant]
     Active Substance: CETIRIZINE HYDROCHLORIDE
     Dosage: PRN
     Route: 065
  5. INCIVEK [Suspect]
     Active Substance: TELAPREVIR
     Indication: HEPATITIS C
     Dosage: 2 TABS WITH FOOD (NOT LOWFAT)
     Route: 048
     Dates: start: 20120604
  6. IBUPROFEN. [Concomitant]
     Active Substance: IBUPROFEN
     Dosage: PRN
     Route: 065

REACTIONS (10)
  - Rash [Unknown]
  - Anaemia [Unknown]
  - Fatigue [Unknown]
  - Thrombocytopenia [Unknown]
  - Pancytopenia [Unknown]
  - Nausea [Unknown]
  - Dermatitis [Unknown]
  - Memory impairment [Unknown]
  - Anxiety [Unknown]
  - Liver function test abnormal [Unknown]
